FAERS Safety Report 9019102 (Version 2)
Quarter: 2013Q1

REPORT INFORMATION
  Report Type: Spontaneous
  Country: DE (occurrence: DE)
  Receive Date: 20130118
  Receipt Date: 20130124
  Transmission Date: 20140127
  Serious: Yes (Life-Threatening, Other)
  Sender: FDA-Public Use
  Company Number: DE-JNJFOC-20121110288

PATIENT
  Age: 3 None
  Sex: Male
  Weight: 13 kg

DRUGS (5)
  1. DIPIDOLOR [Suspect]
     Indication: PROCEDURAL PAIN
     Dosage: FROM 9:20 TO 9:21H
     Route: 042
     Dates: start: 20121127, end: 20121127
  2. DIPIDOLOR [Suspect]
     Indication: PROCEDURAL PAIN
     Dosage: AT 8:30H
     Route: 042
     Dates: start: 20121127, end: 20121127
  3. IBUPROFEN [Suspect]
     Indication: PRODUCT USED FOR UNKNOWN INDICATION
     Route: 054
     Dates: start: 20121127
  4. REMIFENTANIL [Suspect]
     Indication: ANAESTHESIA
     Dosage: FROM 8:00 H TO 9:10 H
     Route: 065
     Dates: start: 20121127, end: 20121127
  5. SEVOFLURANE [Suspect]
     Indication: ANAESTHESIA
     Dosage: FROM 8:00 H TO 9:10 H (AM)
     Route: 065
     Dates: start: 20121127, end: 20121127

REACTIONS (2)
  - Apnoea [Recovered/Resolved]
  - Drug effect increased [Recovered/Resolved]
